FAERS Safety Report 16715396 (Version 1)
Quarter: 2019Q4

REPORT INFORMATION
  Report Type: Spontaneous
  Country: US (occurrence: US)
  Receive Date: 20190816
  Receipt Date: 20190816
  Transmission Date: 20200122
  Serious: Yes (Disabling)
  Sender: FDA-Public Use
  Company Number: None

PATIENT
  Age: 75 Year
  Sex: Female
  Weight: 69.75 kg

DRUGS (8)
  1. CLOPIDOGREL [Suspect]
     Active Substance: CLOPIDOGREL BISULFATE
     Indication: VASCULAR STENT INSERTION
     Dosage: ?          QUANTITY:30 TABLET(S);?
     Route: 048
     Dates: start: 20190523, end: 20190726
  2. TUMERIC [Concomitant]
     Active Substance: HERBALS\TURMERIC
  3. ZEAXANTHIN [Concomitant]
     Active Substance: ZEAXANTHIN
  4. CLOPIDOGREL [Suspect]
     Active Substance: CLOPIDOGREL BISULFATE
     Indication: MAY-THURNER SYNDROME
     Dosage: ?          QUANTITY:30 TABLET(S);?
     Route: 048
     Dates: start: 20190523, end: 20190726
  5. FISH OIL [Concomitant]
     Active Substance: FISH OIL
  6. CINNAMON. [Concomitant]
     Active Substance: CINNAMON
  7. FLAX OIL [Concomitant]
  8. LUTEIN [Concomitant]
     Active Substance: LUTEIN

REACTIONS (6)
  - Peripheral swelling [None]
  - Inflammation [None]
  - Musculoskeletal disorder [None]
  - Groin pain [None]
  - Musculoskeletal pain [None]
  - Autoimmune disorder [None]

NARRATIVE: CASE EVENT DATE: 20190721
